FAERS Safety Report 17084518 (Version 1)
Quarter: 2019Q4

REPORT INFORMATION
  Report Type: Spontaneous
  Country: JP (occurrence: JP)
  Receive Date: 20191127
  Receipt Date: 20191127
  Transmission Date: 20200122
  Serious: Yes (Other)
  Sender: FDA-Public Use
  Company Number: JP-JNJFOC-20191136895

PATIENT
  Age: 71 Year
  Sex: Male

DRUGS (1)
  1. RIVAROXABAN [Suspect]
     Active Substance: RIVAROXABAN
     Indication: ATRIAL FIBRILLATION
     Dosage: DAILY DOSE 10 MG
     Route: 048
     Dates: start: 20111118, end: 20191028

REACTIONS (3)
  - Cerebral infarction [Recovered/Resolved with Sequelae]
  - Cerebral infarction [Unknown]
  - Fall [Unknown]

NARRATIVE: CASE EVENT DATE: 20191028
